FAERS Safety Report 13260020 (Version 1)
Quarter: 2017Q1

REPORT INFORMATION
  Report Type: Spontaneous
  Country: US (occurrence: US)
  Receive Date: 20170222
  Receipt Date: 20170222
  Transmission Date: 20170428
  Serious: No
  Sender: FDA-Public Use
  Company Number: US-TEVA-680946USA

PATIENT
  Age: 42 Year
  Sex: Female

DRUGS (1)
  1. AMPHETAMINE W/DEXTROAMPHETAMINE [Suspect]
     Active Substance: AMPHETAMINE SULFATE\DEXTROAMPHETAMINE
     Dosage: 40 MILLIGRAM DAILY; SOMETIMES UP TO 50
     Route: 065
     Dates: start: 201605

REACTIONS (10)
  - Palpitations [Unknown]
  - Drug ineffective [Unknown]
  - Oesophageal pain [Unknown]
  - Adverse event [Unknown]
  - Somnolence [Unknown]
  - Tremor [Unknown]
  - Feeling abnormal [Unknown]
  - Toxicity to various agents [Unknown]
  - Intentional product use issue [Unknown]
  - Therapeutic response unexpected [Unknown]

NARRATIVE: CASE EVENT DATE: 2016
